FAERS Safety Report 6980837-5 (Version None)
Quarter: 2010Q3

REPORT INFORMATION
  Report Type: 
  Country: None (occurrence: None)
  Receive Date: 20100914
  Receipt Date: 20100903
  Transmission Date: 20110219
  Serious: No
  Sender: FDA-Public Use
  Company Number: US-ELI_LILLY_AND_COMPANY-US201009001611

PATIENT
  Sex: Male

DRUGS (2)
  1. CIALIS [Suspect]
     Dosage: UNK, UNKNOWN
  2. CIALIS [Suspect]
     Dosage: UNK, UNKNOWN

REACTIONS (2)
  - RETINAL DEPOSITS [None]
  - VISION BLURRED [None]
